FAERS Safety Report 10961728 (Version 1)
Quarter: 2015Q1

REPORT INFORMATION
  Report Type: Spontaneous
  Country: US (occurrence: None)
  Receive Date: 20150326
  Receipt Date: 20150326
  Transmission Date: 20150721
  Serious: No
  Sender: FDA-Public Use
  Company Number: None

PATIENT
  Age: 33 Year

DRUGS (1)
  1. DIFLUCAN [Suspect]
     Active Substance: FLUCONAZOLE
     Indication: FUNGAL INFECTION
     Dosage: 1 PILL ONCE TAKEN BY MOUTH
     Route: 048

REACTIONS (4)
  - Pain [None]
  - Drug eruption [None]
  - Disease recurrence [None]
  - Swelling [None]

NARRATIVE: CASE EVENT DATE: 20150324
